FAERS Safety Report 15092728 (Version 1)
Quarter: 2018Q2

REPORT INFORMATION
  Report Type: Spontaneous
  Country: FR (occurrence: FR)
  Receive Date: 20180629
  Receipt Date: 20180629
  Transmission Date: 20180711
  Serious: Yes (Hospitalization)
  Sender: FDA-Public Use
  Company Number: FR-TEVA-2018-FR-915304

PATIENT
  Age: 18 Year
  Sex: Male

DRUGS (1)
  1. CHLORHYDRATE DE TRAMADOL [Suspect]
     Active Substance: TRAMADOL HYDROCHLORIDE
     Dosage: 10 COMPRIM?S DE 50MG
     Route: 048
     Dates: start: 20180424, end: 20180424

REACTIONS (3)
  - Seizure [Recovered/Resolved]
  - Tachycardia [Recovered/Resolved]
  - Drug abuse [Recovered/Resolved]

NARRATIVE: CASE EVENT DATE: 20180424
